FAERS Safety Report 18678793 (Version 4)
Quarter: 2021Q2

REPORT INFORMATION
  Report Type: Spontaneous
  Country: JP (occurrence: JP)
  Receive Date: 20201230
  Receipt Date: 20210408
  Transmission Date: 20210717
  Serious: Yes (Hospitalization, Other)
  Sender: FDA-Public Use
  Company Number: JP-AMGEN-JPNSP2020201656

PATIENT
  Age: 57 Year
  Sex: Female

DRUGS (73)
  1. G?LASTA [Suspect]
     Active Substance: PEGFILGRASTIM
     Indication: COLONY STIMULATING FACTOR THERAPY
     Dosage: 3.6 MILLIGRAM, QD
     Route: 058
     Dates: start: 20200411, end: 20200411
  2. DOXORUBICIN HYDROCHLORIDE. [Suspect]
     Active Substance: DOXORUBICIN HYDROCHLORIDE
     Dosage: 124 MILLIGRAM
     Route: 041
     Dates: start: 20200507, end: 20200507
  3. DEXART [Suspect]
     Active Substance: DEXAMETHASONE SODIUM PHOSPHATE
     Indication: PROPHYLAXIS OF NAUSEA AND VOMITING
     Dosage: 3 MILLILITER
     Route: 041
     Dates: start: 20200409, end: 20201111
  4. DECADRON [Suspect]
     Active Substance: DEXAMETHASONE
     Indication: PROPHYLAXIS OF NAUSEA AND VOMITING
     Dosage: 8 MILLIGRAM
     Route: 048
     Dates: start: 20200409
  5. DECADRON [Suspect]
     Active Substance: DEXAMETHASONE
     Dosage: 8 MG
     Route: 048
     Dates: start: 20200409, end: 20201110
  6. PIPERACILLIN. [Concomitant]
     Active Substance: PIPERACILLIN SODIUM
     Indication: ANTIBIOTIC PROPHYLAXIS
     Dosage: 2 GRAM
     Route: 042
     Dates: start: 20200616, end: 20201202
  7. FEBURIC [Concomitant]
     Active Substance: FEBUXOSTAT
     Dosage: 10 MILLIGRAM, QD
     Route: 048
     Dates: start: 20200526
  8. TRAMAL [Concomitant]
     Active Substance: TRAMADOL
     Indication: ANALGESIC THERAPY
     Dosage: 100 MILLIGRAM, QD
     Route: 048
     Dates: start: 20200614
  9. BESOFTEN [Concomitant]
     Active Substance: PENTOSAN POLYSULFATE SODIUM
     Indication: DRY SKIN PROPHYLAXIS
  10. ALPRAZOLAM. [Concomitant]
     Active Substance: ALPRAZOLAM
     Indication: PROPHYLAXIS OF NAUSEA AND VOMITING
     Dosage: 0.4 MILLIGRAM PRN, AT THE TIME OF QUEASY
     Route: 048
  11. CANDESARTAN. [Concomitant]
     Active Substance: CANDESARTAN
     Indication: BLOOD PRESSURE INCREASED
     Dosage: 8 MILLIGRAM, QD
     Route: 048
  12. JANUVIA [Concomitant]
     Active Substance: SITAGLIPTIN PHOSPHATE
     Indication: DIABETES MELLITUS
     Dosage: 50 MILLIGRAM, QD
     Route: 048
  13. ROSUVASTATIN OD [Concomitant]
     Indication: HYPERLIPIDAEMIA
     Dosage: 2.5 MILLIGRAM, QD
     Route: 048
  14. DOXORUBICIN HYDROCHLORIDE. [Suspect]
     Active Substance: DOXORUBICIN HYDROCHLORIDE
     Indication: INVASIVE DUCTAL BREAST CARCINOMA
     Dosage: 124 MILLIGRAM
     Route: 041
     Dates: start: 20200409, end: 20200409
  15. ACELIO [Suspect]
     Active Substance: ACETAMINOPHEN
     Indication: ANALGESIC THERAPY
     Dosage: 1000 MG
     Route: 042
     Dates: start: 20201124, end: 20201130
  16. LOXOPROFEN [Suspect]
     Active Substance: LOXOPROFEN
     Indication: ANALGESIC THERAPY
     Dosage: 180 MILLIGRAM, TID
     Route: 048
     Dates: start: 20200722
  17. APREPITANT. [Concomitant]
     Active Substance: APREPITANT
     Indication: PROPHYLAXIS OF NAUSEA AND VOMITING
     Dosage: 80 MILLIGRAM
     Route: 048
     Dates: start: 20200409, end: 20201110
  18. BIOFERMIN R [Concomitant]
     Active Substance: DIETARY SUPPLEMENT\PROBIOTICS
     Indication: DYSBIOSIS
     Dosage: 1 GRAM, TID
     Route: 048
     Dates: start: 20200423
  19. LAGNOS NF [Concomitant]
     Indication: CONSTIPATION PROPHYLAXIS
     Dosage: 12 GRAM, QD
     Route: 048
     Dates: start: 20200512, end: 20210222
  20. FEBURIC [Concomitant]
     Active Substance: FEBUXOSTAT
     Dosage: UNK
  21. SAHNE [Concomitant]
     Indication: ECZEMA
     Dosage: UNK
     Route: 061
     Dates: start: 20201008
  22. GLYCYRON [DL?METHIONINE;GLYCINE;GLYCYRRHIZIC ACID, AMMONIUM SALT] [Concomitant]
     Active Substance: AMMONIUM GLYCYRRHIZATE\GLYCINE\RACEMETHIONINE
     Indication: HEPATIC FUNCTION ABNORMAL
     Dosage: UNK UNK, TID
     Route: 048
     Dates: start: 20201204, end: 20210112
  23. DOXORUBICIN HYDROCHLORIDE. [Suspect]
     Active Substance: DOXORUBICIN HYDROCHLORIDE
     Dosage: 124 MILLIGRAM
     Route: 041
     Dates: start: 20200528, end: 20200528
  24. CALONAL [Suspect]
     Active Substance: ACETAMINOPHEN
     Indication: PAIN PROPHYLAXIS
     Dosage: 400 MILLIGRAM, TID
     Route: 048
     Dates: start: 20200430
  25. SOLANAX [Concomitant]
     Active Substance: ALPRAZOLAM
     Dosage: UNK
  26. PRIMPERAN [Concomitant]
     Active Substance: METOCLOPRAMIDE HYDROCHLORIDE
     Indication: PROPHYLAXIS OF NAUSEA AND VOMITING
     Dosage: 5 MILLIGRAM
     Route: 048
     Dates: start: 20200409, end: 20200507
  27. ROZEREM [Concomitant]
     Active Substance: RAMELTEON
     Indication: INSOMNIA
     Dosage: 8 MG, QD
     Route: 048
     Dates: start: 20200629, end: 20200702
  28. BESOFTEN [Concomitant]
     Active Substance: PENTOSAN POLYSULFATE SODIUM
     Indication: DRY SKIN PROPHYLAXIS
     Dosage: UNK
     Route: 065
  29. ETHYL ICOSAPENTATE [Concomitant]
     Active Substance: ICOSAPENT ETHYL
     Indication: HYPERLIPIDAEMIA
     Dosage: 1200 MILLIGRAM, BID
     Route: 048
  30. BAYASPIRIN [Concomitant]
     Active Substance: ASPIRIN
     Indication: ANTICOAGULANT THERAPY
     Dosage: 100 MILLIGRAM, QD
     Route: 048
  31. ENDOXAN [CYCLOPHOSPHAMIDE MONOHYDRATE] [Suspect]
     Active Substance: CYCLOPHOSPHAMIDE
     Dosage: 1240 MILLIGRAM
     Route: 041
     Dates: start: 20200528, end: 20200528
  32. ALOXI [Concomitant]
     Active Substance: PALONOSETRON HYDROCHLORIDE
     Indication: PROPHYLAXIS OF NAUSEA AND VOMITING
     Dosage: 5 MILLILITER
     Route: 042
     Dates: start: 20200409, end: 20201110
  33. SOLDEM [Concomitant]
     Active Substance: DEXTROSE\POTASSIUM CHLORIDE\SODIUM CHLORIDE\SODIUM LACTATE
     Indication: ELECTROLYTE SUBSTITUTION THERAPY
     Dosage: 500 MILLILITER
     Route: 041
     Dates: start: 20200616, end: 20200619
  34. GASTER [Concomitant]
     Active Substance: FAMOTIDINE
     Indication: ALLERGY PROPHYLAXIS
     Dosage: 20 MILLIGRAM
     Route: 041
     Dates: start: 20200804, end: 20201029
  35. SOLANAX [Concomitant]
     Active Substance: ALPRAZOLAM
     Indication: PROPHYLAXIS OF NAUSEA AND VOMITING
     Dosage: 0.4 MG
     Route: 048
     Dates: start: 20200409, end: 20201110
  36. FEBURIC [Concomitant]
     Active Substance: FEBUXOSTAT
     Indication: HYPERURICAEMIA
     Dosage: 10 MG, QD
     Route: 048
     Dates: start: 20200526, end: 20210222
  37. URSO [Concomitant]
     Active Substance: URSODIOL
     Indication: HEPATIC FUNCTION ABNORMAL
     Dosage: 100 MG, TID
     Route: 048
     Dates: start: 20201204, end: 20210112
  38. DEXALTIN [Suspect]
     Active Substance: DEXAMETHASONE
     Indication: STOMATITIS
     Dosage: UNK
     Route: 061
     Dates: start: 20200514, end: 20200514
  39. CEFAZOLIN NA [Concomitant]
     Active Substance: CEFAZOLIN SODIUM
     Indication: ANTIBIOTIC PROPHYLAXIS
     Dosage: 1 GRAM
     Route: 042
     Dates: start: 20200626, end: 20200712
  40. MAGMITT [Concomitant]
     Active Substance: MAGNESIUM OXIDE
     Indication: DYSPEPSIA
     Dosage: 660 MILLIGRAM, TID
     Route: 048
     Dates: start: 20200409
  41. AZUNOL GARGLE LIQUID [Concomitant]
     Active Substance: SODIUM GUALENATE MONOHYDRATE
     Indication: INFLAMMATION
     Dosage: UNK
     Route: 049
     Dates: start: 20200514
  42. LANSOPRAZOLE. [Concomitant]
     Active Substance: LANSOPRAZOLE
     Indication: PEPTIC ULCER
     Dosage: 15 MG, QD
     Route: 048
     Dates: start: 20200514, end: 20200526
  43. FERROUS CITRATE NA [Concomitant]
     Active Substance: SODIUM FERROUS CITRATE
     Indication: MARROW HYPERPLASIA
     Dosage: 50 MILLIGRAM, QD
     Route: 048
     Dates: start: 20200625
  44. BESOFTEN [Concomitant]
     Active Substance: PENTOSAN POLYSULFATE SODIUM
     Indication: VASCULAR INSUFFICIENCY
     Dosage: UNK
     Route: 061
     Dates: start: 20201008
  45. G?LASTA [Suspect]
     Active Substance: PEGFILGRASTIM
     Dosage: 3.6 MILLIGRAM, QD
     Route: 058
     Dates: start: 20200509, end: 20200509
  46. DOXORUBICIN HYDROCHLORIDE. [Suspect]
     Active Substance: DOXORUBICIN HYDROCHLORIDE
     Dosage: 124 MILLIGRAM
     Route: 041
     Dates: start: 20201110, end: 20201110
  47. ENDOXAN [CYCLOPHOSPHAMIDE MONOHYDRATE] [Suspect]
     Active Substance: CYCLOPHOSPHAMIDE
     Dosage: 1240 MILLIGRAM
     Route: 041
     Dates: start: 20200507, end: 20200507
  48. NAIXAN [NAPROXEN] [Suspect]
     Active Substance: NAPROXEN
     Indication: ANALGESIC THERAPY
     Dosage: 100 MILLIGRAM, TID
     Route: 048
     Dates: start: 20201130
  49. FESIN [SACCHARATED IRON OXIDE] [Concomitant]
     Active Substance: IRON SUCROSE
     Indication: MARROW HYPERPLASIA
     Dosage: 2 MILLILITER
     Route: 041
     Dates: start: 20201203, end: 20201215
  50. VITAMEDIN [CYANOCOBALAMIN;PYRIDOXINE HYDROCHLORIDE;THIAMINE HYDROCHLOR [Concomitant]
     Indication: VITAMIN SUPPLEMENTATION
     Dosage: UNK
     Route: 041
     Dates: start: 20201204, end: 20201215
  51. REBAMIPIDE [Concomitant]
     Active Substance: REBAMIPIDE
     Indication: PEPTIC ULCER
     Dosage: 300 MG, TID
     Route: 048
     Dates: start: 20200722, end: 20210129
  52. RESTAMIN KOWA [Concomitant]
     Indication: ALLERGY PROPHYLAXIS
     Dosage: 50 MG, QD
     Route: 048
     Dates: start: 20200825, end: 20201029
  53. METOCLOPRAMIDE. [Concomitant]
     Active Substance: METOCLOPRAMIDE
     Indication: PROPHYLAXIS OF NAUSEA AND VOMITING
     Dosage: 5 MG, PRN, AT THE TIME OF QUEASY
     Route: 048
  54. G?LASTA [Suspect]
     Active Substance: PEGFILGRASTIM
     Dosage: 3.6 MILLIGRAM, QD
     Route: 058
     Dates: start: 20200530, end: 20200530
  55. G?LASTA [Suspect]
     Active Substance: PEGFILGRASTIM
     Dosage: 3.6 MILLIGRAM, QD
     Route: 058
     Dates: start: 20201112, end: 20201112
  56. ENDOXAN [CYCLOPHOSPHAMIDE MONOHYDRATE] [Suspect]
     Active Substance: CYCLOPHOSPHAMIDE
     Indication: INVASIVE DUCTAL BREAST CARCINOMA
     Dosage: 1240 MILLIGRAM
     Route: 041
     Dates: start: 20200409, end: 20200409
  57. SYCREST [Concomitant]
     Active Substance: ASENAPINE MALEATE
     Indication: PSYCHOTIC DISORDER
     Dosage: 5 MILLIGRAM
     Route: 060
     Dates: start: 20200409, end: 20201110
  58. TARLIGE [Concomitant]
     Active Substance: MIROGABALIN BESYLATE
     Dosage: 2.5 MG, QD
     Route: 048
     Dates: start: 20200813, end: 20201124
  59. LETROZOLE. [Concomitant]
     Active Substance: LETROZOLE
     Indication: INVASIVE DUCTAL BREAST CARCINOMA
     Dosage: 2.5 MILLIGRAM, QD
     Route: 048
     Dates: start: 20201222
  60. NEXIUM [Concomitant]
     Active Substance: ESOMEPRAZOLE MAGNESIUM
     Indication: PEPTIC ULCER
     Dosage: 20 MILLIGRAM, QD
     Route: 048
  61. ZETIA [Concomitant]
     Active Substance: EZETIMIBE
     Indication: HYPERLIPIDAEMIA
     Dosage: 10 MILLIGRAM, QD
     Route: 048
  62. OLMESARTAN OD [Concomitant]
     Active Substance: OLMESARTAN MEDOXOMIL
     Indication: BLOOD PRESSURE INCREASED
     Dosage: 10 MILLIGRAM, QD
     Route: 048
  63. ENDOXAN [CYCLOPHOSPHAMIDE MONOHYDRATE] [Suspect]
     Active Substance: CYCLOPHOSPHAMIDE
     Dosage: 1240 MILLIGRAM
     Route: 041
     Dates: start: 20201110, end: 20201110
  64. PACLITAXEL. [Suspect]
     Active Substance: PACLITAXEL
     Indication: INVASIVE DUCTAL BREAST CARCINOMA
     Dosage: 155 MG/BODY
     Route: 041
     Dates: start: 20200804, end: 20201029
  65. LEVOFLOXACIN. [Concomitant]
     Active Substance: LEVOFLOXACIN
     Indication: ANTIBIOTIC PROPHYLAXIS
     Dosage: 500 MILLIGRAM, QD
     Route: 048
     Dates: start: 20200409
  66. AMOXICILLIN. [Concomitant]
     Active Substance: AMOXICILLIN
     Indication: ANTIBIOTIC PROPHYLAXIS
     Dosage: 250 MILLIGRAM, TID
     Route: 048
     Dates: start: 20200403
  67. GENTAMICIN SULFATE. [Concomitant]
     Active Substance: GENTAMICIN SULFATE
     Indication: ANTIBIOTIC PROPHYLAXIS
     Dosage: SEVERAL TIMES
     Route: 061
     Dates: start: 20200423
  68. BELSOMRA [Concomitant]
     Active Substance: SUVOREXANT
     Indication: INSOMNIA
     Dosage: 15 MG, QD
     Route: 048
     Dates: start: 20200629, end: 20200702
  69. TARLIGE [Concomitant]
     Active Substance: MIROGABALIN BESYLATE
     Indication: NEURALGIA
     Dosage: 2.5 MILLIGRAM, QD
     Route: 048
     Dates: start: 20200813
  70. MYSER [DIFLUPREDNATE] [Concomitant]
     Indication: ECZEMA
     Dosage: UNK
     Route: 061
     Dates: start: 20201008
  71. VITAMEDIN [BENFOTIAMINE;CYANOCOBALAMIN;PYRIDOXINE HYDROCHLORIDE] [Concomitant]
     Indication: VITAMIN SUPPLEMENTATION
     Dosage: UNK, TID
     Route: 048
     Dates: start: 20201215
  72. BIO?THREE [Concomitant]
     Active Substance: HERBALS
     Indication: GASTROINTESTINAL DISORDER
     Dosage: UNK, QID
     Route: 048
  73. NIFEDIPINE L [Concomitant]
     Active Substance: NIFEDIPINE
     Indication: BLOOD PRESSURE INCREASED
     Dosage: 20 MILLIGRAM, QD
     Route: 048

REACTIONS (15)
  - Sepsis [Recovered/Resolved]
  - Neuropathy peripheral [Recovered/Resolved]
  - Constipation [Recovered/Resolved]
  - Insomnia [Recovered/Resolved]
  - Alanine aminotransferase increased [Recovered/Resolved]
  - Axillary pain [Recovered/Resolved]
  - Postoperative wound infection [Recovered/Resolved]
  - Iron deficiency anaemia [Recovered/Resolved]
  - Aortitis [Recovered/Resolved]
  - Infective aortitis [Recovered/Resolved]
  - Peptic ulcer [Recovered/Resolved]
  - Hypersensitivity [Recovered/Resolved]
  - Gastric ulcer [Recovered/Resolved]
  - Stomatitis [Recovered/Resolved]
  - Blood alkaline phosphatase increased [Recovered/Resolved]

NARRATIVE: CASE EVENT DATE: 20200423
